FAERS Safety Report 6075653-5 (Version None)
Quarter: 2009Q1

REPORT INFORMATION
  Report Type: 
  Country: None (occurrence: None)
  Receive Date: 20090210
  Receipt Date: 20090210
  Transmission Date: 20090719
  Serious: Yes (Hospitalization, Other)
  Sender: FDA-Public Use
  Company Number: None

PATIENT
  Sex: Male
  Weight: 34.4734 kg

DRUGS (1)
  1. GOLYTELY [Suspect]
     Indication: CONSTIPATION
     Dosage: NG TUBE
     Dates: start: 20090124, end: 20090125

REACTIONS (2)
  - CONVULSION [None]
  - LOSS OF CONSCIOUSNESS [None]
